FAERS Safety Report 7864779-9 (Version None)
Quarter: 2011Q4

REPORT INFORMATION
  Report Type: 
  Country: None (occurrence: None)
  Receive Date: 20111028
  Receipt Date: 20111019
  Transmission Date: 20120403
  Serious: Yes (Death, Life-Threatening, Hospitalization, Other)
  Sender: FDA-Public Use
  Company Number: JP-AMGEN-US399580

PATIENT
  Age: 70 Year
  Sex: Female
  Weight: 40 kg

DRUGS (11)
  1. LANSOPRAZOLE [Suspect]
     Indication: ULCER
     Dosage: 15 MG, 1X/DAY
     Route: 048
     Dates: start: 20061220, end: 20100302
  2. PROGRAF [Concomitant]
     Dosage: 1.5 MG, 1X/DAY
     Route: 048
     Dates: start: 20061220
  3. PROGRAF [Concomitant]
     Dosage: 2 MG, 1X/DAY
     Route: 048
     Dates: start: 20080301, end: 20090324
  4. RHEUMATREX [Concomitant]
     Indication: RHEUMATOID ARTHRITIS
     Dosage: 4 MG, QWK
     Route: 048
     Dates: start: 20090930, end: 20091028
  5. LOXONIN [Concomitant]
     Dosage: 60 MG, 3X/DAY
     Route: 048
     Dates: start: 20060201, end: 20100302
  6. ALFAROL [Concomitant]
     Indication: OSTEOPOROSIS
     Dosage: 1 MG, QD
     Route: 048
     Dates: start: 20061031, end: 20100204
  7. ASPARA-CA [Concomitant]
     Indication: OSTEOPOROSIS
     Dosage: 400 MG, 1X/DAY
     Route: 048
     Dates: start: 20061031, end: 20100302
  8. FOSAMAX [Concomitant]
     Indication: OSTEOPOROSIS
     Dosage: 35 MG, QWK
     Route: 048
     Dates: start: 20081125, end: 20100204
  9. ENBREL [Suspect]
     Indication: RHEUMATOID ARTHRITIS
     Dosage: 25 MG, 2X/WEEK
     Route: 058
     Dates: start: 20090212, end: 20100302
  10. PRELONE [Concomitant]
     Indication: RHEUMATOID ARTHRITIS
     Dosage: 3 MG, 1X/DAY
     Route: 048
     Dates: end: 20100302
  11. PROGRAF [Concomitant]
     Indication: RHEUMATOID ARTHRITIS
     Dosage: 2 MG, 1X/DAY
     Route: 048
     Dates: start: 20090507, end: 20090701

REACTIONS (11)
  - CEREBRAL INFARCTION [None]
  - TEMPERATURE INTOLERANCE [None]
  - DISSEMINATED INTRAVASCULAR COAGULATION [None]
  - RENAL IMPAIRMENT [None]
  - LUMBAR SPINAL STENOSIS [None]
  - ACUTE DISSEMINATED ENCEPHALOMYELITIS [None]
  - DEAFNESS BILATERAL [None]
  - BLOOD PHOSPHORUS DECREASED [None]
  - TINNITUS [None]
  - BLOOD POTASSIUM DECREASED [None]
  - VASCULITIS CEREBRAL [None]
